FAERS Safety Report 16813946 (Version 3)
Quarter: 2020Q1

REPORT INFORMATION
  Report Type: Spontaneous
  Country: US (occurrence: US)
  Receive Date: 20190917
  Receipt Date: 20200326
  Transmission Date: 20200409
  Serious: Yes (Other)
  Sender: FDA-Public Use
  Company Number: US-GILEAD-2019-0428026

PATIENT
  Sex: Male
  Weight: 96.15 kg

DRUGS (70)
  1. PERCOCET [OXYCODONE HYDROCHLORIDE;OXYCODONE TEREPHTHALATE;PARACETAMOL] [Concomitant]
     Active Substance: ACETAMINOPHEN\OXYCODONE HYDROCHLORIDE\OXYCODONE TEREPHTHALATE
  2. TRESIBA [Concomitant]
     Active Substance: INSULIN DEGLUDEC
  3. ALPHAGAN P [Concomitant]
     Active Substance: BRIMONIDINE TARTRATE
  4. LEVOFLOXACIN. [Concomitant]
     Active Substance: LEVOFLOXACIN
  5. LISINOPRIL. [Concomitant]
     Active Substance: LISINOPRIL
  6. INDOMETHACIN [INDOMETACIN] [Concomitant]
     Active Substance: INDOMETHACIN
  7. LIDOCAINE HCL [Concomitant]
     Active Substance: LIDOCAINE HYDROCHLORIDE
  8. MOXIFLOXACIN. [Concomitant]
     Active Substance: MOXIFLOXACIN
  9. TESTOSTERONE CYPIONATE. [Concomitant]
     Active Substance: TESTOSTERONE CYPIONATE
  10. ALDARA [Concomitant]
     Active Substance: IMIQUIMOD
  11. KALETRA [Concomitant]
     Active Substance: LOPINAVIR\RITONAVIR
  12. LYRICA [Concomitant]
     Active Substance: PREGABALIN
  13. GABITRIL [Concomitant]
     Active Substance: TIAGABINE HYDROCHLORIDE
  14. VASCEPA [Concomitant]
     Active Substance: ICOSAPENT ETHYL
  15. ROSUVASTATIN CALCIUM. [Concomitant]
     Active Substance: ROSUVASTATIN CALCIUM
  16. TAMSULOSIN [Concomitant]
     Active Substance: TAMSULOSIN
  17. CETIRIZINE [Concomitant]
     Active Substance: CETIRIZINE HYDROCHLORIDE
  18. TOUJEO [Concomitant]
     Active Substance: INSULIN GLARGINE
  19. SILVADENE [Concomitant]
     Active Substance: SILVER SULFADIAZINE
  20. CICLOPIROX. [Concomitant]
     Active Substance: CICLOPIROX
  21. AVELOX [Concomitant]
     Active Substance: MOXIFLOXACIN HYDROCHLORIDE
  22. TRADJENTA [Concomitant]
     Active Substance: LINAGLIPTIN
  23. MUPIROCIN. [Concomitant]
     Active Substance: MUPIROCIN
  24. AMOXICILLIN TRIHYDRATE;CLAVULANATE POTASSIUM [Concomitant]
     Active Substance: AMOXICILLIN\CLAVULANATE POTASSIUM
  25. LOTEMAX [Concomitant]
     Active Substance: LOTEPREDNOL ETABONATE
  26. NEOMYCIN. [Concomitant]
     Active Substance: NEOMYCIN
  27. ONDANSETRON [Concomitant]
     Active Substance: ONDANSETRON
  28. BUPROPION HYDROCHLORIDE XL [Concomitant]
     Active Substance: BUPROPION HYDROCHLORIDE
  29. TRUVADA [Suspect]
     Active Substance: EMTRICITABINE\TENOFOVIR DISOPROXIL FUMARATE
     Indication: HIV INFECTION
     Dosage: UNK
     Route: 048
     Dates: start: 20100907, end: 20160715
  30. OXYCODONE AND ACETAMINOPHEN [Concomitant]
     Active Substance: ACETAMINOPHEN\OXYCODONE HYDROCHLORIDE
  31. SULFAMETHOXAZOLE AND TRIMETHOPRIM [Concomitant]
     Active Substance: SULFAMETHOXAZOLE\TRIMETHOPRIM
  32. PREDNISONE. [Concomitant]
     Active Substance: PREDNISONE
  33. CIALIS [Concomitant]
     Active Substance: TADALAFIL
  34. QUETIAPINE FUMARATE. [Concomitant]
     Active Substance: QUETIAPINE FUMARATE
  35. X-VIATE [Concomitant]
     Active Substance: UREA
  36. PURELAX [Concomitant]
     Active Substance: POLYETHYLENE GLYCOL 3350
  37. COLLAGENASE SANTYL [Concomitant]
     Active Substance: COLLAGENASE CLOSTRIDIUM HISTOLYTICUM
  38. ZOLPIDEM TARTRATE. [Concomitant]
     Active Substance: ZOLPIDEM TARTRATE
  39. ISENTRESS [Concomitant]
     Active Substance: RALTEGRAVIR POTASSIUM
  40. AMMONIUM LACTATE. [Concomitant]
     Active Substance: AMMONIUM LACTATE
  41. PRAVASTATIN SODIUM. [Concomitant]
     Active Substance: PRAVASTATIN SODIUM
  42. HYDROXYZINE [Concomitant]
     Active Substance: HYDROXYZINE HYDROCHLORIDE
  43. TRAZODONE [Concomitant]
     Active Substance: TRAZODONE HYDROCHLORIDE
  44. IPRATROPIUM [Concomitant]
     Active Substance: IPRATROPIUM
  45. DESCOVY [Concomitant]
     Active Substance: EMTRICITABINE\TENOFOVIR ALAFENAMIDE FUMARATE
  46. NYSTATIN. [Concomitant]
     Active Substance: NYSTATIN
  47. AMITRIPTYLINE [Concomitant]
     Active Substance: AMITRIPTYLINE
  48. AZITHROMYCIN ANHYDROUS. [Concomitant]
     Active Substance: AZITHROMYCIN ANHYDROUS
  49. ZETIA [Concomitant]
     Active Substance: EZETIMIBE
  50. PROAIR HFA [Concomitant]
     Active Substance: ALBUTEROL SULFATE
  51. OXYCODONE [Concomitant]
     Active Substance: OXYCODONE
  52. SILDENAFIL. [Concomitant]
     Active Substance: SILDENAFIL
  53. METFORMIN HYDROCHLORIDE. [Concomitant]
     Active Substance: METFORMIN HYDROCHLORIDE
  54. GLIPIZIDE. [Concomitant]
     Active Substance: GLIPIZIDE
  55. FEBUXOSTAT. [Concomitant]
     Active Substance: FEBUXOSTAT
  56. PROBENECID. [Concomitant]
     Active Substance: PROBENECID
  57. PROCHLORPERAZINE. [Concomitant]
     Active Substance: PROCHLORPERAZINE
  58. DOXYCYCLINE HYCLATE. [Concomitant]
     Active Substance: DOXYCYCLINE HYCLATE
  59. ALLOPURINOL. [Concomitant]
     Active Substance: ALLOPURINOL
  60. SERTRALINE [Concomitant]
     Active Substance: SERTRALINE HYDROCHLORIDE
  61. BISACODYL. [Concomitant]
     Active Substance: BISACODYL
  62. SEROQUEL [Concomitant]
     Active Substance: QUETIAPINE FUMARATE
  63. ADVAIR HFA [Concomitant]
     Active Substance: FLUTICASONE PROPIONATE\SALMETEROL XINAFOATE
  64. BYDUREON [Concomitant]
     Active Substance: EXENATIDE
  65. VITAMIN D2 [Concomitant]
     Active Substance: ERGOCALCIFEROL
  66. ULORIC [Concomitant]
     Active Substance: FEBUXOSTAT
  67. TRAVATAN [Concomitant]
     Active Substance: TRAVOPROST
  68. FENOFIBRATE. [Concomitant]
     Active Substance: FENOFIBRATE
  69. VENTOLIN [Concomitant]
     Active Substance: ALBUTEROL SULFATE
  70. CONDYLOX [Concomitant]
     Active Substance: PODOFILOX

REACTIONS (13)
  - Anxiety [Unknown]
  - Chondropathy [Not Recovered/Not Resolved]
  - Bone density abnormal [Unknown]
  - Bone density decreased [Not Recovered/Not Resolved]
  - Economic problem [Unknown]
  - Pain [Unknown]
  - Muscle atrophy [Not Recovered/Not Resolved]
  - Tooth loss [Unknown]
  - Emotional distress [Unknown]
  - Gait disturbance [Not Recovered/Not Resolved]
  - Anhedonia [Unknown]
  - Osteoporosis [Not Recovered/Not Resolved]
  - Loss of personal independence in daily activities [Not Recovered/Not Resolved]
